FAERS Safety Report 6553524-5 (Version None)
Quarter: 2010Q1

REPORT INFORMATION
  Report Type: 
  Country: None (occurrence: None)
  Receive Date: 20100127
  Receipt Date: 20100118
  Transmission Date: 20100710
  Serious: Yes (Other)
  Sender: FDA-Public Use
  Company Number: TW-ROCHE-680046

PATIENT
  Age: 55 Year
  Sex: Female

DRUGS (5)
  1. PEG-INTERFERON A-2A (RO 25-8310) [Suspect]
     Route: 058
     Dates: start: 20060515
  2. PEG-INTERFERON A-2A (RO 25-8310) [Suspect]
     Route: 058
  3. RIBAVIRIN [Suspect]
     Route: 048
     Dates: start: 20060515
  4. RIBAVIRIN [Suspect]
     Route: 048
  5. RIBAVIRIN [Suspect]
     Route: 048

REACTIONS (1)
  - PULMONARY TUBERCULOSIS [None]
